FAERS Safety Report 7109891-7 (Version None)
Quarter: 2010Q4

REPORT INFORMATION
  Report Type: 
  Country: None (occurrence: None)
  Receive Date: 20101118
  Receipt Date: 20101108
  Transmission Date: 20110411
  Serious: Yes (Other)
  Sender: FDA-Public Use
  Company Number: NL-JNJFOC-20101102420

PATIENT
  Sex: Male

DRUGS (5)
  1. RISPERDAL CONSTA [Suspect]
     Indication: ILL-DEFINED DISORDER
     Route: 030
  2. CARBAMAZEPINE [Concomitant]
     Indication: ILL-DEFINED DISORDER
     Route: 065
  3. DIAZEPINE [Concomitant]
     Indication: ILL-DEFINED DISORDER
     Route: 065
  4. LORAZEPAM [Concomitant]
     Indication: ILL-DEFINED DISORDER
     Route: 065
  5. VALPROATE SODIUM [Concomitant]
     Indication: ILL-DEFINED DISORDER
     Route: 065

REACTIONS (1)
  - HALLUCINATION, AUDITORY [None]
